FAERS Safety Report 14794211 (Version 2)
Quarter: 2019Q4

REPORT INFORMATION
  Report Type: Report from Study
  Country: US (occurrence: US)
  Receive Date: 20180423
  Receipt Date: 20191224
  Transmission Date: 20200122
  Serious: Yes (Other)
  Sender: FDA-Public Use
  Company Number: US-GILEAD-2018-0334454

PATIENT
  Age: 78 Year
  Sex: Male

DRUGS (2)
  1. RANOLAZINE. [Suspect]
     Active Substance: RANOLAZINE
     Dosage: 1000 MG, UNK
     Route: 048
     Dates: start: 2018
  2. RANOLAZINE. [Suspect]
     Active Substance: RANOLAZINE
     Indication: ANGINA PECTORIS
     Dosage: 500 MG, UNK
     Route: 048

REACTIONS (2)
  - Neoplasm malignant [Not Recovered/Not Resolved]
  - Lung carcinoma cell type unspecified stage III [Unknown]

NARRATIVE: CASE EVENT DATE: 20171227
